FAERS Safety Report 7654406-8 (Version None)
Quarter: 2011Q3

REPORT INFORMATION
  Report Type: 
  Country: None (occurrence: None)
  Receive Date: 20110803
  Receipt Date: 20110801
  Transmission Date: 20111222
  Serious: Yes (Other)
  Sender: FDA-Public Use
  Company Number: CA-PFIZER INC-2011135086

PATIENT
  Age: 46 Year
  Sex: Female

DRUGS (1)
  1. VARENICLINE TARTRATE [Suspect]
     Dosage: 1 MG, 2X/DAY
     Dates: start: 20110501, end: 20110101

REACTIONS (3)
  - SKIN REACTION [None]
  - GENITAL HERPES [None]
  - RASH VESICULAR [None]
